FAERS Safety Report 7875980-2 (Version None)
Quarter: 2011Q4

REPORT INFORMATION
  Report Type: 
  Country: None (occurrence: None)
  Receive Date: 20111031
  Receipt Date: 20100417
  Transmission Date: 20120403
  Serious: No
  Sender: FDA-Public Use
  Company Number: US-BAYER-201020400NA

PATIENT
  Sex: Female

DRUGS (1)
  1. AVELOX [Suspect]
     Indication: SINUSITIS
     Dosage: 400 MG, QD

REACTIONS (4)
  - TREMOR [None]
  - PANIC ATTACK [None]
  - DIZZINESS [None]
  - ABDOMINAL DISCOMFORT [None]
